FAERS Safety Report 5448181-5 (Version None)
Quarter: 2007Q3

REPORT INFORMATION
  Report Type: 
  Country: None (occurrence: None)
  Receive Date: 20070905
  Receipt Date: 20070828
  Transmission Date: 20080115
  Serious: Yes (Hospitalization, Other)
  Sender: FDA-Public Use
  Company Number: SPV1-2007-03977

PATIENT
  Age: 63 Year
  Sex: Female

DRUGS (1)
  1. 405 (LANTHANUM CARBONATE) [Suspect]
     Indication: BLOOD PHOSPHORUS ABNORMAL
     Dosage: 750 MG, 3X/DAY;TID,
     Route: 048
     Dates: start: 20070420, end: 20070424

REACTIONS (3)
  - DIARRHOEA [None]
  - RASH [None]
  - VOMITING [None]
